FAERS Safety Report 17818287 (Version 1)
Quarter: 2020Q2

REPORT INFORMATION
  Report Type: Spontaneous
  Country: US (occurrence: US)
  Receive Date: 20200522
  Receipt Date: 20200522
  Transmission Date: 20200714
  Serious: Yes (Hospitalization, Other)
  Sender: FDA-Public Use
  Company Number: US-NAPPMUNDI-GBR-2020-0076812

PATIENT
  Age: 38 Year
  Sex: Female

DRUGS (1)
  1. BUPRENORPHINE. [Suspect]
     Active Substance: BUPRENORPHINE
     Indication: DRUG DEPENDENCE
     Dosage: 4 MG, UNK
     Route: 060

REACTIONS (3)
  - Chorea [Recovered/Resolved]
  - Hyperkinesia [Recovered/Resolved]
  - Extrapyramidal disorder [Recovered/Resolved]
